FAERS Safety Report 15769505 (Version 1)
Quarter: 2018Q4

REPORT INFORMATION
  Report Type: Spontaneous
  Country: JP (occurrence: JP)
  Receive Date: 20181228
  Receipt Date: 20181228
  Transmission Date: 20190205
  Serious: Yes (Hospitalization)
  Sender: FDA-Public Use
  Company Number: JP-AMGEN-JPNSP2018185381

PATIENT
  Age: 69 Year
  Sex: Male
  Weight: 90 kg

DRUGS (6)
  1. FOSRENOL [Concomitant]
     Active Substance: LANTHANUM CARBONATE
     Dosage: 750 MG, QD
     Route: 048
     Dates: start: 20181210
  2. NESP [Concomitant]
     Active Substance: DARBEPOETIN ALFA
     Dosage: 20 MUG, QWK
     Route: 065
  3. PARSABIV [Suspect]
     Active Substance: ETELCALCETIDE HYDROCHLORIDE
     Indication: HYPERPARATHYROIDISM SECONDARY
     Dosage: 2.5 MG, Q56H
     Route: 042
     Dates: start: 20181112
  4. ROCALTROL [Concomitant]
     Active Substance: CALCITRIOL
     Dosage: 0.5 MUG, 3 TIMES/WK
     Route: 042
     Dates: start: 20180629
  5. FOSRENOL [Concomitant]
     Active Substance: LANTHANUM CARBONATE
     Dosage: 250 MG, QD
     Route: 048
     Dates: end: 20181209
  6. PRECIPITATED CALCIUM CARBONATE [Concomitant]
     Active Substance: CALCIUM CARBONATE
     Dosage: 1500 MG, QD
     Route: 048
     Dates: start: 20181114

REACTIONS (1)
  - Shunt stenosis [Recovered/Resolved]

NARRATIVE: CASE EVENT DATE: 20181203
